FAERS Safety Report 16190216 (Version 5)
Quarter: 2020Q3

REPORT INFORMATION
  Report Type: Spontaneous
  Country: US (occurrence: US)
  Receive Date: 20190412
  Receipt Date: 20200910
  Transmission Date: 20201102
  Serious: No
  Sender: FDA-Public Use
  Company Number: US-PFIZER INC-2019157625

PATIENT
  Age: 78 Year
  Sex: Female
  Weight: 73.47 kg

DRUGS (1)
  1. LYRICA [Suspect]
     Active Substance: PREGABALIN
     Indication: NERVE INJURY
     Dosage: 150 MG, DAILY  (2 CAPSULES BEFORE BED)
     Route: 048

REACTIONS (2)
  - Hypoacusis [Unknown]
  - Thinking abnormal [Unknown]
